FAERS Safety Report 19610886 (Version 8)
Quarter: 2022Q2

REPORT INFORMATION
  Report Type: Report from Study
  Country: DE (occurrence: DE)
  Receive Date: 20210726
  Receipt Date: 20220628
  Transmission Date: 20220721
  Serious: Yes (Hospitalization, Other)
  Sender: FDA-Public Use
  Company Number: DE-TAKEDA-2021TUS036732

PATIENT
  Age: 61 Year
  Sex: Female

DRUGS (41)
  1. TEDUGLUTIDE [Suspect]
     Active Substance: TEDUGLUTIDE
     Indication: Short-bowel syndrome
     Dosage: 3 MILLIGRAM, 1/WEEK
     Route: 042
     Dates: start: 20201112, end: 20201208
  2. TEDUGLUTIDE [Suspect]
     Active Substance: TEDUGLUTIDE
     Indication: Short-bowel syndrome
     Dosage: 3 MILLIGRAM, 1/WEEK
     Route: 042
     Dates: start: 20201112, end: 20201208
  3. TEDUGLUTIDE [Suspect]
     Active Substance: TEDUGLUTIDE
     Indication: Short-bowel syndrome
     Dosage: 3 MILLIGRAM, 1/WEEK
     Route: 042
     Dates: start: 20201112, end: 20201208
  4. TEDUGLUTIDE [Suspect]
     Active Substance: TEDUGLUTIDE
     Indication: Short-bowel syndrome
     Dosage: 3 MILLIGRAM, 1/WEEK
     Route: 042
     Dates: start: 20201112, end: 20201208
  5. TEDUGLUTIDE [Suspect]
     Active Substance: TEDUGLUTIDE
     Dosage: 2 MILLIGRAM, 1/WEEK
     Route: 042
     Dates: start: 20201209, end: 20201215
  6. TEDUGLUTIDE [Suspect]
     Active Substance: TEDUGLUTIDE
     Dosage: 2 MILLIGRAM, 1/WEEK
     Route: 042
     Dates: start: 20201209, end: 20201215
  7. TEDUGLUTIDE [Suspect]
     Active Substance: TEDUGLUTIDE
     Dosage: 2 MILLIGRAM, 1/WEEK
     Route: 042
     Dates: start: 20201209, end: 20201215
  8. TEDUGLUTIDE [Suspect]
     Active Substance: TEDUGLUTIDE
     Dosage: 2 MILLIGRAM, 1/WEEK
     Route: 042
     Dates: start: 20201209, end: 20201215
  9. TEDUGLUTIDE [Suspect]
     Active Substance: TEDUGLUTIDE
     Dosage: 2.4 MILLIGRAM, 1/WEEK
     Route: 042
     Dates: start: 20201216
  10. TEDUGLUTIDE [Suspect]
     Active Substance: TEDUGLUTIDE
     Dosage: 2.4 MILLIGRAM, 1/WEEK
     Route: 042
     Dates: start: 20201216
  11. TEDUGLUTIDE [Suspect]
     Active Substance: TEDUGLUTIDE
     Dosage: 2.4 MILLIGRAM, 1/WEEK
     Route: 042
     Dates: start: 20201216
  12. TEDUGLUTIDE [Suspect]
     Active Substance: TEDUGLUTIDE
     Dosage: 2.4 MILLIGRAM, 1/WEEK
     Route: 042
     Dates: start: 20201216
  13. TEDUGLUTIDE [Suspect]
     Active Substance: TEDUGLUTIDE
     Dosage: 2.4 MILLIGRAM, 7 DOSES PER WEEK
     Route: 042
     Dates: start: 20201216, end: 20210922
  14. TEDUGLUTIDE [Suspect]
     Active Substance: TEDUGLUTIDE
     Dosage: 2.4 MILLIGRAM, 7 DOSES PER WEEK
     Route: 042
     Dates: start: 20201216, end: 20210922
  15. TEDUGLUTIDE [Suspect]
     Active Substance: TEDUGLUTIDE
     Dosage: 2.4 MILLIGRAM, 7 DOSES PER WEEK
     Route: 042
     Dates: start: 20201216, end: 20210922
  16. TEDUGLUTIDE [Suspect]
     Active Substance: TEDUGLUTIDE
     Dosage: 2.4 MILLIGRAM, 7 DOSES PER WEEK
     Route: 042
     Dates: start: 20201216, end: 20210922
  17. TEDUGLUTIDE [Suspect]
     Active Substance: TEDUGLUTIDE
     Dosage: 2 MILLIGRAM
     Route: 042
     Dates: start: 20210923
  18. TEDUGLUTIDE [Suspect]
     Active Substance: TEDUGLUTIDE
     Dosage: 2 MILLIGRAM
     Route: 042
     Dates: start: 20210923
  19. TEDUGLUTIDE [Suspect]
     Active Substance: TEDUGLUTIDE
     Dosage: 2 MILLIGRAM
     Route: 042
     Dates: start: 20210923
  20. TEDUGLUTIDE [Suspect]
     Active Substance: TEDUGLUTIDE
     Dosage: 2 MILLIGRAM
     Route: 042
     Dates: start: 20210923
  21. TEDUGLUTIDE [Suspect]
     Active Substance: TEDUGLUTIDE
     Dosage: 2.4 MILLIGRAM
     Route: 042
     Dates: start: 20211215
  22. TEDUGLUTIDE [Suspect]
     Active Substance: TEDUGLUTIDE
     Dosage: 2.4 MILLIGRAM
     Route: 042
     Dates: start: 20211215
  23. TEDUGLUTIDE [Suspect]
     Active Substance: TEDUGLUTIDE
     Dosage: 2.4 MILLIGRAM
     Route: 042
     Dates: start: 20211215
  24. TEDUGLUTIDE [Suspect]
     Active Substance: TEDUGLUTIDE
     Dosage: 2.4 MILLIGRAM
     Route: 042
     Dates: start: 20211215
  25. TEDUGLUTIDE [Suspect]
     Active Substance: TEDUGLUTIDE
     Dosage: 2 MILLIGRAM
     Route: 042
     Dates: start: 20201112
  26. TEDUGLUTIDE [Suspect]
     Active Substance: TEDUGLUTIDE
     Dosage: 2 MILLIGRAM
     Route: 042
     Dates: start: 20201112
  27. TEDUGLUTIDE [Suspect]
     Active Substance: TEDUGLUTIDE
     Dosage: 2 MILLIGRAM
     Route: 042
     Dates: start: 20201112
  28. TEDUGLUTIDE [Suspect]
     Active Substance: TEDUGLUTIDE
     Dosage: 2 MILLIGRAM
     Route: 042
     Dates: start: 20201112
  29. TEDUGLUTIDE [Suspect]
     Active Substance: TEDUGLUTIDE
     Dosage: UNK
     Route: 042
     Dates: start: 20201113
  30. TEDUGLUTIDE [Suspect]
     Active Substance: TEDUGLUTIDE
     Dosage: UNK
     Route: 042
     Dates: start: 20201113
  31. TEDUGLUTIDE [Suspect]
     Active Substance: TEDUGLUTIDE
     Dosage: UNK
     Route: 042
     Dates: start: 20201113
  32. TEDUGLUTIDE [Suspect]
     Active Substance: TEDUGLUTIDE
     Dosage: UNK
     Route: 042
     Dates: start: 20201113
  33. Selenase [Concomitant]
     Indication: Selenium deficiency
     Dosage: 100 MICROGRAM, QOD
     Route: 048
     Dates: start: 20210608
  34. DIMETHICONE [Concomitant]
     Active Substance: DIMETHICONE
     Indication: Abdominal distension
     Dosage: 2 DOSAGE FORM
     Route: 060
     Dates: start: 202103
  35. PREDNISOLONE [Concomitant]
     Active Substance: PREDNISOLONE
     Indication: Rheumatic disorder
     Dosage: 5 MILLIGRAM, QD
     Route: 048
     Dates: start: 20210119
  36. METAMIZOLE [Concomitant]
     Active Substance: METAMIZOLE
     Indication: Rheumatic disorder
     Dosage: 500 MILLIGRAM, TID
     Route: 048
     Dates: start: 20201221, end: 202101
  37. METAMIZOLE [Concomitant]
     Active Substance: METAMIZOLE
     Indication: Condition aggravated
  38. IBUPROFEN [Concomitant]
     Active Substance: IBUPROFEN
     Indication: Rheumatic disorder
     Dosage: 600 MILLIGRAM, QID
     Route: 048
     Dates: start: 20201221, end: 202101
  39. IBUPROFEN [Concomitant]
     Active Substance: IBUPROFEN
     Indication: Condition aggravated
  40. SIMETICON [Concomitant]
     Indication: Flatulence
     Dosage: 44 GTT DROPS
     Route: 048
     Dates: start: 202110
  41. AMOXIL [Concomitant]
     Active Substance: AMOXICILLIN
     Indication: Angina pectoris
     Dosage: 750 MILLIGRAM, TID
     Route: 048
     Dates: start: 20211102

REACTIONS (7)
  - Pancreatitis acute [Recovered/Resolved]
  - Rheumatic fever [Recovered/Resolved]
  - Gamma-glutamyltransferase increased [Not Recovered/Not Resolved]
  - Night sweats [Not Recovered/Not Resolved]
  - Selenium deficiency [Recovered/Resolved]
  - Vomiting [Unknown]
  - Abdominal pain [Recovered/Resolved]

NARRATIVE: CASE EVENT DATE: 20210501
